FAERS Safety Report 6084770-5 (Version None)
Quarter: 2009Q1

REPORT INFORMATION
  Report Type: 
  Country: None (occurrence: None)
  Receive Date: 20090217
  Receipt Date: 20090203
  Transmission Date: 20090719
  Serious: Yes (Death, Other)
  Sender: FDA-Public Use
  Company Number: 2007EN000107

PATIENT
  Age: 36 Year
  Sex: Male

DRUGS (24)
  1. ABELCET [Suspect]
     Indication: ASPERGILLOSIS
     Dosage: 375 MG;QD;IV
     Route: 042
     Dates: start: 20070925, end: 20071019
  2. ABELCET [Suspect]
     Indication: PNEUMONIA
     Dosage: 375 MG;QD;IV
     Route: 042
     Dates: start: 20070925, end: 20071019
  3. ABELCET [Suspect]
     Indication: SEPSIS
     Dosage: 375 MG;QD;IV
     Route: 042
     Dates: start: 20070925, end: 20071019
  4. ABELCET [Suspect]
     Indication: ZYGOMYCOSIS
     Dosage: 375 MG;QD;IV
     Route: 042
     Dates: start: 20070925, end: 20071019
  5. VORICONAZOLE [Concomitant]
  6. CASPOFUNGIN [Concomitant]
  7. VALGANCICLOVIR HCL [Concomitant]
  8. FENTANYL [Concomitant]
  9. CYCLOSPORINE [Concomitant]
  10. INSULIN [Concomitant]
  11. FUROSEMIDE [Concomitant]
  12. POTASSIUM CHLORIDE [Concomitant]
  13. PROPOFOL [Concomitant]
  14. HYDROCORTISONE [Concomitant]
  15. COTRIM [Concomitant]
  16. LORAZEPAM [Concomitant]
  17. HALOPERIDOL [Concomitant]
  18. MYCOPHENOLATE MOFETIL [Concomitant]
  19. PARACETAMOL [Concomitant]
  20. ESOMEPRAZOLE [Concomitant]
  21. ACETAZOLAMIDE [Concomitant]
  22. HEPARIN [Concomitant]
  23. METHIMAZOLE [Concomitant]
  24. LEVOTHYROXINE SODIUM [Concomitant]

REACTIONS (4)
  - BRADYCARDIA [None]
  - CARDIAC DEATH [None]
  - HYPERKALAEMIA [None]
  - VENTRICULAR FIBRILLATION [None]
